FAERS Safety Report 23218445 (Version 2)
Quarter: 2023Q4

REPORT INFORMATION
  Report Type: Spontaneous
  Country: GB (occurrence: GB)
  Receive Date: 20231122
  Receipt Date: 20231128
  Transmission Date: 20240109
  Serious: Yes (Other)
  Sender: FDA-Public Use
  Company Number: GB-LEO Pharma-365186

PATIENT
  Sex: Male

DRUGS (1)
  1. ENSTILAR [Suspect]
     Active Substance: BETAMETHASONE DIPROPIONATE\CALCIPOTRIENE HYDRATE
     Indication: Psoriasis
     Dosage: 2 CANS PER WEEK BETWEEN 9 TO 12 MONTHS
     Route: 003

REACTIONS (4)
  - Cushing^s syndrome [Unknown]
  - Adrenal insufficiency [Unknown]
  - Overdose [Unknown]
  - Off label use [Unknown]
